FAERS Safety Report 7801922-1 (Version None)
Quarter: 2011Q4

REPORT INFORMATION
  Report Type: 
  Country: None (occurrence: None)
  Receive Date: 20111007
  Receipt Date: 20111007
  Transmission Date: 20120403
  Serious: Yes (Hospitalization)
  Sender: FDA-Public Use
  Company Number: None

PATIENT
  Sex: Female
  Weight: 45.67 kg

DRUGS (1)
  1. ERLOTINIB HYDROCHLORIDE [Suspect]
     Indication: COLON CANCER
     Dosage: 100 MG
     Route: 048
     Dates: start: 20110812, end: 20111004

REACTIONS (12)
  - LIP ULCERATION [None]
  - DEHYDRATION [None]
  - BALANCE DISORDER [None]
  - SEPSIS [None]
  - FATIGUE [None]
  - MALAISE [None]
  - NASAL ULCER [None]
  - MOUTH ULCERATION [None]
  - EPISTAXIS [None]
  - SOMNOLENCE [None]
  - VOMITING [None]
  - STOMATITIS [None]
